FAERS Safety Report 17684605 (Version 1)
Quarter: 2020Q2

REPORT INFORMATION
  Report Type: Spontaneous
  Country: US (occurrence: US)
  Receive Date: 20200420
  Receipt Date: 20200420
  Transmission Date: 20200714
  Serious: Yes (Hospitalization, Congenital Anomaly, Other)
  Sender: FDA-Public Use
  Company Number: US-ASTRAZENECA-2020SE24233

PATIENT
  Age: 0 Day
  Sex: Male
  Weight: 4 kg

DRUGS (10)
  1. SYNAGIS [Suspect]
     Active Substance: PALIVIZUMAB
     Indication: PULMONARY HYPERTENSION
     Route: 030
     Dates: start: 20200122
  2. SYNAGIS [Suspect]
     Active Substance: PALIVIZUMAB
     Indication: ILL-DEFINED DISORDER
     Route: 030
     Dates: start: 20200122
  3. SYNAGIS [Suspect]
     Active Substance: PALIVIZUMAB
     Indication: ILL-DEFINED DISORDER
     Dosage: 0.59ML UNKNOWN
     Route: 030
     Dates: start: 20200310
  4. SYNAGIS [Suspect]
     Active Substance: PALIVIZUMAB
     Indication: PULMONARY HYPERTENSION
     Dosage: 50 MG/VL 15 MG/KG MONTHLY
     Route: 030
     Dates: start: 20200122
  5. SILDENAFIL. [Concomitant]
     Active Substance: SILDENAFIL
     Indication: PULMONARY HYPERTENSION
     Dosage: 1.0MG UNKNOWN
     Dates: start: 20190917
  6. SYNAGIS [Suspect]
     Active Substance: PALIVIZUMAB
     Indication: PREMATURE BABY
     Dosage: 0.59ML UNKNOWN
     Route: 030
     Dates: start: 20200310
  7. SYNAGIS [Suspect]
     Active Substance: PALIVIZUMAB
     Indication: PULMONARY HYPERTENSION
     Dosage: 0.59ML UNKNOWN
     Route: 030
     Dates: start: 20200310
  8. SYNAGIS [Suspect]
     Active Substance: PALIVIZUMAB
     Indication: PREMATURE BABY
     Dosage: 50 MG/VL 15 MG/KG MONTHLY
     Route: 030
     Dates: start: 20200122
  9. SYNAGIS [Suspect]
     Active Substance: PALIVIZUMAB
     Indication: ILL-DEFINED DISORDER
     Dosage: 50 MG/VL 15 MG/KG MONTHLY
     Route: 030
     Dates: start: 20200122
  10. SYNAGIS [Suspect]
     Active Substance: PALIVIZUMAB
     Indication: PREMATURE BABY
     Route: 030
     Dates: start: 20200122

REACTIONS (4)
  - Right ventricular dysfunction [Recovering/Resolving]
  - Hypoxia [Recovering/Resolving]
  - Pulmonary hypertension [Unknown]
  - Atrial septal defect [Unknown]

NARRATIVE: CASE EVENT DATE: 20190917
